FAERS Safety Report 25721800 (Version 1)
Quarter: 2025Q3

REPORT INFORMATION
  Report Type: Spontaneous
  Country: EU (occurrence: EU)
  Receive Date: 20250825
  Receipt Date: 20250825
  Transmission Date: 20251021
  Serious: Yes (Hospitalization)
  Sender: MERCK SHARP & DOHME LLC
  Company Number: None

PATIENT
  Sex: Male

DRUGS (2)
  1. MEASLES-MUMPS-RUBELLA VIRUS VACCINE [Suspect]
     Active Substance: MEASLES-MUMPS-RUBELLA VIRUS VACCINE
     Indication: Immunisation
     Route: 030
     Dates: start: 20221027, end: 20221027
  2. MEASLES-MUMPS-RUBELLA VIRUS VACCINE [Suspect]
     Active Substance: MEASLES-MUMPS-RUBELLA VIRUS VACCINE
     Indication: Immunisation
     Route: 030
     Dates: start: 20221027, end: 20221027

REACTIONS (4)
  - Testicular oedema [Recovered/Resolved]
  - Pyrexia [Unknown]
  - Orchitis [Recovered/Resolved]
  - Genital erythema [Recovered/Resolved]

NARRATIVE: CASE EVENT DATE: 20221101
